FAERS Safety Report 4968126-1 (Version None)
Quarter: 2006Q2

REPORT INFORMATION
  Report Type: 
  Country: None (occurrence: None)
  Receive Date: 20060405
  Receipt Date: 20060323
  Transmission Date: 20061013
  Serious: Yes (Hospitalization, Other)
  Sender: FDA-Public Use
  Company Number: HQWYE108802MAR06

PATIENT
  Age: 27 Year
  Sex: Female

DRUGS (15)
  1. RAPAMUNE [Suspect]
     Indication: PROPHYLAXIS AGAINST TRANSPLANT REJECTION
     Dosage: 9 MG 1X PER 1 DAY
     Dates: start: 20051125
  2. RAPAMUNE [Suspect]
  3. MYCOPHENOLATE MOFETIL [Concomitant]
  4. MYCOPHENOLATE MOFETIL [Concomitant]
  5. MEPREDNISONE (MEPREDNISONE) [Concomitant]
  6. MEPREDNISONE (MEPREDNISONE) [Concomitant]
  7. MEPREDNISONE (MEPREDNISONE) [Concomitant]
  8. MEPREDNISONE (MEPREDNISONE) [Concomitant]
  9. MEPREDNISONE (MEPREDNISONE) [Concomitant]
  10. PRAVASTATIN [Concomitant]
  11. ATENOLOL [Concomitant]
  12. BEZAFIBRATE (BEZAFIBRATE) [Concomitant]
  13. SULFAMETHOXAZOLE + TRIMETHOPRIM [Concomitant]
  14. OMEPRAZOLE [Concomitant]
  15. CIPROFLOXACIN [Concomitant]

REACTIONS (5)
  - AZOTAEMIA [None]
  - BLOOD CREATININE INCREASED [None]
  - DRUG INEFFECTIVE [None]
  - ESCHERICHIA URINARY TRACT INFECTION [None]
  - KIDNEY TRANSPLANT REJECTION [None]
